FAERS Safety Report 13775096 (Version 1)
Quarter: 2017Q3

REPORT INFORMATION
  Report Type: Spontaneous
  Country: GB (occurrence: GB)
  Receive Date: 20170720
  Receipt Date: 20170720
  Transmission Date: 20171127
  Serious: Yes (Other)
  Sender: FDA-Public Use
  Company Number: GB-PFIZER INC-1618330

PATIENT
  Age: 64 Year
  Sex: Male

DRUGS (5)
  1. PRIMIDONE. [Suspect]
     Active Substance: PRIMIDONE
     Indication: EPILEPSY
     Dosage: 250 MG, FREQ : 1 DAY ; INTERVAL: 1
  2. LEVETIRACETAM. [Suspect]
     Active Substance: LEVETIRACETAM
     Indication: EPILEPSY
     Dosage: 500 MG, MORNING AND EVENING, FREQ : 2 DAY ; INTERVAL 1:
  3. PHENYTOIN. [Suspect]
     Active Substance: PHENYTOIN
     Indication: EPILEPSY
     Dosage: 250 MG, SINGLE, FREQ : TOTAL
  4. CLOBAZAM [Concomitant]
     Active Substance: CLOBAZAM
     Dosage: 10 MG, FREQ : 3 DAY; INTERVAL : 1
  5. CLOBAZAM [Concomitant]
     Active Substance: CLOBAZAM
     Indication: PRODUCT USED FOR UNKNOWN INDICATION
     Dosage: 10 MG, FREQ : 1 DAY; INTERVAL: 1

REACTIONS (5)
  - Headache [Unknown]
  - Cardiac disorder [Unknown]
  - Toxicity to various agents [Unknown]
  - Hypertension [Unknown]
  - Dizziness [Unknown]
